FAERS Safety Report 16789730 (Version 1)
Quarter: 2019Q4

REPORT INFORMATION
  Report Type: Spontaneous
  Country: US (occurrence: US)
  Receive Date: 20190909
  Receipt Date: 20190909
  Transmission Date: 20200122
  Serious: No
  Sender: FDA-Public Use
  Company Number: None

PATIENT
  Age: 50 Year
  Sex: Male
  Weight: 127.35 kg

DRUGS (2)
  1. IV CONTRAST (TYPE UNKNOWN) 20MINS PRIOR TO ALTEPLASE [Concomitant]
     Dates: start: 20190821, end: 20190821
  2. ALTEPLASE. [Suspect]
     Active Substance: ALTEPLASE
     Indication: CEREBROVASCULAR ACCIDENT
     Dosage: ?          OTHER FREQUENCY:ONE DOSE;?
     Route: 042
     Dates: start: 20190821, end: 20190821

REACTIONS (3)
  - Dyspnoea [None]
  - Loss of consciousness [None]
  - Burning sensation [None]

NARRATIVE: CASE EVENT DATE: 20190821
